FAERS Safety Report 9536666 (Version 1)
Quarter: 2013Q4

REPORT INFORMATION
  Report Type: Spontaneous
  Country: US (occurrence: None)
  Receive Date: 20130918
  Receipt Date: 20130918
  Transmission Date: 20140711
  Serious: Yes (Other)
  Sender: FDA-Public Use
  Company Number: None

PATIENT
  Age: 19 Year
  Sex: Female
  Weight: 49.9 kg

DRUGS (6)
  1. NEXPLANON [Suspect]
     Indication: CONTRACEPTION
     Dosage: SUBDERMAL
     Route: 059
     Dates: start: 20130701, end: 20130705
  2. CHATEAL COC [Concomitant]
  3. LIDOCAINE + EPINEPHRINE [Concomitant]
  4. POVIDONE + IODINE [Concomitant]
  5. BANDAID [Concomitant]
  6. STERI STRIPS [Concomitant]

REACTIONS (2)
  - Implant site rash [None]
  - Device allergy [None]
